FAERS Safety Report 10415744 (Version 1)
Quarter: 2014Q3

REPORT INFORMATION
  Report Type: Spontaneous
  Country: US (occurrence: None)
  Receive Date: 20140827
  Receipt Date: 20140827
  Transmission Date: 20150326
  Serious: Yes (Other)
  Sender: FDA-Public Use
  Company Number: None

PATIENT
  Age: 31 Year
  Sex: Female

DRUGS (5)
  1. NEXPLANON [Suspect]
     Active Substance: ETONOGESTREL
     Indication: CONTRACEPTION
     Dates: start: 20140515, end: 20140825
  2. CLINDAMYCIN 1% [Concomitant]
  3. SALICYLIC ACID [Concomitant]
     Active Substance: SALICYLIC ACID
  4. MULTIVITAMIN [Concomitant]
     Active Substance: VITAMINS
  5. NAPROXEN. [Concomitant]
     Active Substance: NAPROXEN

REACTIONS (2)
  - Acne [None]
  - Drug ineffective [None]

NARRATIVE: CASE EVENT DATE: 20140825
